FAERS Safety Report 4281988-9 (Version None)
Quarter: 2004Q1

REPORT INFORMATION
  Report Type: 
  Country: None (occurrence: None)
  Receive Date: 20040128
  Receipt Date: 20040116
  Transmission Date: 20041129
  Serious: No
  Sender: FDA-Public Use
  Company Number: 04P-163-0247512-00

PATIENT
  Age: 3 Year
  Sex: Female
  Weight: 14.2883 kg

DRUGS (4)
  1. NORVIR [Suspect]
     Indication: HIV INFECTION
     Dosage: 1.4 ML, 1 IN 1 D, ORAL
     Route: 048
     Dates: start: 20030308, end: 20031212
  2. GW433908 SUSPENSION [Suspect]
     Indication: HIV INFECTION
     Dosage: 11.2 ML, 1 IN 1 D, ORAL
     Route: 048
     Dates: start: 20030308, end: 20031212
  3. ABACAVIR SULFATE [Concomitant]
  4. ZIDOVUDINE [Concomitant]

REACTIONS (1)
  - BLOOD ALKALINE PHOSPHATASE INCREASED [None]
